FAERS Safety Report 6811872-5 (Version None)
Quarter: 2010Q3

REPORT INFORMATION
  Report Type: 
  Country: None (occurrence: None)
  Receive Date: 20100701
  Receipt Date: 20100607
  Transmission Date: 20110219
  Serious: Yes (Hospitalization, Other)
  Sender: FDA-Public Use
  Company Number: US-BAYER-201017271NA

PATIENT
  Age: 19 Year
  Sex: Female
  Weight: 68 kg

DRUGS (21)
  1. YASMIN [Suspect]
     Indication: ORAL CONTRACEPTION
     Route: 048
     Dates: start: 20071101, end: 20080401
  2. ALEVE (CAPLET) [Concomitant]
  3. IBUPROFEN [Concomitant]
  4. TYLENOL [Concomitant]
  5. NAPROSYN [Concomitant]
     Dosage: ON AND OFF THOUGH LIFE
  6. ASMANEX TWISTHALER [Concomitant]
  7. ALBUTEROL [Concomitant]
     Indication: ASTHMA
     Route: 055
     Dates: start: 20080301
  8. FLOVENT [Concomitant]
     Indication: ASTHMA
     Route: 055
     Dates: start: 20080301
  9. ZITHROMAX [Concomitant]
  10. AMOXICILLIN [Concomitant]
  11. OMNICEF [Concomitant]
  12. CIPROXIN [Concomitant]
  13. CLINDAMYCIN [Concomitant]
     Dates: start: 20081001, end: 20081201
  14. ERYTHROMYCIN [Concomitant]
     Dates: start: 20090101
  15. PREDNISONE [Concomitant]
     Indication: ASTHMA
     Dates: start: 20080301
  16. OXYCODONE HCL [Concomitant]
     Dates: start: 20080401
  17. APAP W/ CODEINE [Concomitant]
     Dates: start: 20090801
  18. LOESTRIN 1.5/30 [Concomitant]
  19. FLOVENT HFA [Concomitant]
     Dates: start: 20080301
  20. AMOX/K CLAV [Concomitant]
     Dates: start: 20080401
  21. BENZOYL [Concomitant]
     Dates: start: 20081201

REACTIONS (6)
  - CHEST PAIN [None]
  - DEEP VEIN THROMBOSIS [None]
  - NON-CARDIAC CHEST PAIN [None]
  - PLEURAL EFFUSION [None]
  - PULMONARY EMBOLISM [None]
  - SCAR [None]
